FAERS Safety Report 15370766 (Version 1)
Quarter: 2018Q4

REPORT INFORMATION
  Report Type: Spontaneous
  Country: ZA (occurrence: ZA)
  Receive Date: 20180911
  Receipt Date: 20180911
  Transmission Date: 20190204
  Serious: Yes (Hospitalization)
  Sender: FDA-Public Use
  Company Number: IND-ZA-009507513-1809ZAF000677

PATIENT
  Sex: Male

DRUGS (9)
  1. LYRICA [Suspect]
     Active Substance: PREGABALIN
     Dosage: UNK
  2. ADCO SIMVASTATIN [Suspect]
     Active Substance: SIMVASTATIN
     Dosage: UNK
  3. CARLOC [Suspect]
     Active Substance: CARVEDILOL
     Dosage: UNK
  4. EXINEF [Suspect]
     Active Substance: ETORICOXIB
     Dosage: UNK
  5. SYNALEVE (ACETAMINOPHEN (+) CODEINE PHOSPHATE (+) MEPROBAMATE) [Suspect]
     Active Substance: ACETAMINOPHEN\CODEINE PHOSPHATE\MEPROBAMATE
     Dosage: UNK
  6. ECOTRIN [Suspect]
     Active Substance: ASPIRIN
     Dosage: UNK
  7. STILNOX [Suspect]
     Active Substance: ZOLPIDEM TARTRATE
     Dosage: UNK
  8. CARLOC [Suspect]
     Active Substance: CARVEDILOL
     Dosage: UNK
  9. URBANOL [Suspect]
     Active Substance: CLOBAZAM
     Dosage: UNK

REACTIONS (1)
  - Foot operation [Unknown]
